FAERS Safety Report 5062956-6 (Version None)
Quarter: 2006Q3

REPORT INFORMATION
  Report Type: 
  Country: None (occurrence: None)
  Receive Date: 20060724
  Receipt Date: 20060713
  Transmission Date: 20061208
  Serious: Yes (Death)
  Sender: FDA-Public Use
  Company Number: 2006-01789

PATIENT
  Age: 70 Year
  Sex: Male

DRUGS (7)
  1. VELCADE [Suspect]
     Indication: MULTIPLE MYELOMA
  2. DEXAMETHASONE [Suspect]
     Indication: MULTIPLE MYELOMA
  3. THALIDOMIDE (THALIDOMIDE) TABLET [Suspect]
     Indication: MULTIPLE MYELOMA
  4. CISPLATIN [Suspect]
     Indication: MULTIPLE MYELOMA
  5. DOXORUBICIN HCL [Suspect]
     Indication: MULTIPLE MYELOMA
  6. CYCLOPHOSPHAMIDE [Suspect]
     Indication: MULTIPLE MYELOMA
  7. ETOPOSIDE [Suspect]
     Indication: MULTIPLE MYELOMA

REACTIONS (21)
  - AMMONIA INCREASED [None]
  - AORTIC VALVE STENOSIS [None]
  - ARTERIOSCLEROSIS CORONARY ARTERY [None]
  - BRONCHOPNEUMONIA [None]
  - CRYPTOGENIC ORGANISING PNEUMONIA [None]
  - GASTROINTESTINAL DISORDER [None]
  - HEPATOSPLENOMEGALY [None]
  - MITRAL VALVE CALCIFICATION [None]
  - MULTI-ORGAN FAILURE [None]
  - MYOCARDIAL INFARCTION [None]
  - NEPHRITIS INTERSTITIAL [None]
  - NEUTROPENIA [None]
  - PERICARDITIS [None]
  - PETECHIAE [None]
  - PNEUMONITIS [None]
  - RENAL CYST [None]
  - RENAL FAILURE [None]
  - RESPIRATORY DISORDER [None]
  - THYROID NEOPLASM [None]
  - TRICUSPID VALVE CALCIFICATION [None]
  - VENTRICULAR HYPERTROPHY [None]
